FAERS Safety Report 6113892-5 (Version None)
Quarter: 2009Q1

REPORT INFORMATION
  Report Type: 
  Country: None (occurrence: None)
  Receive Date: 20090312
  Receipt Date: 20080717
  Transmission Date: 20090719
  Serious: No
  Sender: FDA-Public Use
  Company Number: US-ABBOTT-08P-163-0463546-00

PATIENT
  Age: 48 Year
  Sex: Female

DRUGS (6)
  1. LUPRON DEPOT [Suspect]
     Indication: ENDOMETRIOSIS
     Route: 030
     Dates: start: 20060101
  2. LUPRON DEPOT [Suspect]
     Indication: PELVIC PAIN
  3. CALCIUM [Concomitant]
     Indication: MINERAL SUPPLEMENTATION
     Route: 048
  4. ERGOCALCIFEROL [Concomitant]
     Indication: VITAMIN SUPPLEMENTATION
     Route: 048
  5. PROVELLA-14 [Concomitant]
     Indication: OESTROGEN REPLACEMENT THERAPY
  6. MULTIPLE PAIN MEDS [Concomitant]
     Indication: PAIN

REACTIONS (1)
  - OSTEOPENIA [None]
